FAERS Safety Report 24917119 (Version 2)
Quarter: 2025Q2

REPORT INFORMATION
  Report Type: Spontaneous
  Country: US (occurrence: US)
  Receive Date: 20250203
  Receipt Date: 20250408
  Transmission Date: 20250717
  Serious: No
  Sender: INCYTE
  Company Number: US-EVENT-001240

PATIENT
  Age: 36 Year

DRUGS (1)
  1. OPZELURA [Suspect]
     Active Substance: RUXOLITINIB PHOSPHATE
     Indication: Dermatitis atopic
     Dosage: 1.5% CREAM,APPLY A THIN LAYER TO AFFECTED AREA(S) ON THE ARMS,LEGS\T\ TRUNK TWICE DAILY AS DIRECTED

REACTIONS (1)
  - Nasopharyngitis [Unknown]
